FAERS Safety Report 7300973-3 (Version None)
Quarter: 2011Q1

REPORT INFORMATION
  Report Type: 
  Country: None (occurrence: None)
  Receive Date: 20110110
  Receipt Date: 20101103
  Transmission Date: 20110831
  Serious: No
  Sender: FDA-Public Use
  Company Number: 2010IP000137

PATIENT
  Age: 85 Year
  Sex: Male

DRUGS (3)
  1. BEPREVE [Suspect]
     Indication: LACRIMATION INCREASED
     Dosage: 1 GTT; BID; OPH
     Route: 047
     Dates: start: 20101101, end: 20101102
  2. GLUCOPHAGE [Concomitant]
  3. REFRESH TEARS [Concomitant]

REACTIONS (1)
  - VISION BLURRED [None]
